FAERS Safety Report 9277290 (Version 1)
Quarter: 2013Q2

REPORT INFORMATION
  Report Type: Spontaneous
  Country: US (occurrence: None)
  Receive Date: 20130502
  Receipt Date: 20130502
  Transmission Date: 20140414
  Serious: No
  Sender: FDA-Public Use
  Company Number: None

PATIENT
  Sex: Female

DRUGS (1)
  1. EGRIFTA [Suspect]
     Indication: LIPODYSTROPHY ACQUIRED
     Route: 058
     Dates: start: 20120208

REACTIONS (5)
  - Paraesthesia [None]
  - Hypoaesthesia [None]
  - Arthralgia [None]
  - Myalgia [None]
  - Treatment noncompliance [None]
